FAERS Safety Report 9258122 (Version 1)
Quarter: 2013Q2

REPORT INFORMATION
  Report Type: Spontaneous
  Country: DE (occurrence: DE)
  Receive Date: 20130426
  Receipt Date: 20130426
  Transmission Date: 20140414
  Serious: Yes (Other)
  Sender: FDA-Public Use
  Company Number: DE-JNJFOC-20130413037

PATIENT
  Sex: 0

DRUGS (11)
  1. DOXORUBICIN [Suspect]
     Indication: MANTLE CELL LYMPHOMA
     Route: 042
  2. RITUXIMAB [Suspect]
     Indication: MANTLE CELL LYMPHOMA
     Route: 065
  3. CYCLOPHOSPHAMIDE [Suspect]
     Indication: MANTLE CELL LYMPHOMA
     Route: 065
  4. VINCRISTINE [Suspect]
     Indication: MANTLE CELL LYMPHOMA
     Route: 065
  5. PREDNISONE [Suspect]
     Indication: MANTLE CELL LYMPHOMA
     Route: 065
  6. CYTARABINE [Suspect]
     Indication: MANTLE CELL LYMPHOMA
     Route: 065
  7. CYTARABINE [Suspect]
     Indication: MANTLE CELL LYMPHOMA
     Dosage: HIGH DOSE
     Route: 065
  8. CISPLATIN [Suspect]
     Indication: MANTLE CELL LYMPHOMA
     Route: 065
  9. DEXAMETHASONE [Suspect]
     Indication: MANTLE CELL LYMPHOMA
     Route: 065
  10. RADIOTHERAPY [Suspect]
     Indication: MANTLE CELL LYMPHOMA
     Route: 065
  11. FLUDARABINE [Suspect]
     Indication: MANTLE CELL LYMPHOMA
     Route: 065

REACTIONS (2)
  - Treatment failure [Unknown]
  - Off label use [Unknown]
